FAERS Safety Report 25744135 (Version 1)
Quarter: 2025Q3

REPORT INFORMATION
  Report Type: Spontaneous
  Country: US (occurrence: US)
  Receive Date: 20250831
  Receipt Date: 20250831
  Transmission Date: 20251020
  Serious: No
  Sender: VELOXIS PHARMACEUTICALS
  Company Number: US-VELOXIS PHARMACEUTICALS, INC.-2024-VEL-00475

PATIENT
  Age: 3 Decade
  Sex: Female

DRUGS (3)
  1. ENVARSUS XR [Suspect]
     Active Substance: TACROLIMUS
     Indication: Prophylaxis against transplant rejection
     Route: 065
     Dates: start: 20240712, end: 20240720
  2. ENVARSUS XR [Suspect]
     Active Substance: TACROLIMUS
     Route: 065
     Dates: start: 20240721, end: 20240803
  3. ENVARSUS XR [Suspect]
     Active Substance: TACROLIMUS
     Route: 065
     Dates: start: 20240804

REACTIONS (1)
  - Immunosuppressant drug level abnormal [Unknown]
